FAERS Safety Report 15067395 (Version 1)
Quarter: 2018Q2

REPORT INFORMATION
  Report Type: Spontaneous
  Country: US (occurrence: US)
  Receive Date: 20180626
  Receipt Date: 20180626
  Transmission Date: 20180711
  Serious: Yes (Hospitalization, Other)
  Sender: FDA-Public Use
  Company Number: US-ABBVIE-18K-163-2398703-00

PATIENT
  Age: 0 Year
  Sex: Male

DRUGS (2)
  1. HUMIRA [Suspect]
     Active Substance: ADALIMUMAB
     Indication: EXPOSURE VIA BODY FLUID
     Route: 050
  2. AMOXICILLIN. [Concomitant]
     Active Substance: AMOXICILLIN
     Indication: PROPHYLAXIS

REACTIONS (8)
  - Cyanosis neonatal [Recovered/Resolved]
  - Arrhythmia neonatal [Unknown]
  - Hydronephrosis [Not Recovered/Not Resolved]
  - Congenital ureteric anomaly [Unknown]
  - Foetal exposure during pregnancy [Unknown]
  - Bradycardia neonatal [Recovered/Resolved]
  - Hydrocephalus [Unknown]
  - Premature baby [Unknown]

NARRATIVE: CASE EVENT DATE: 2018
